APPROVED DRUG PRODUCT: VIGABATRIN
Active Ingredient: VIGABATRIN
Strength: 500MG/PACKET
Dosage Form/Route: FOR SOLUTION;ORAL
Application: A214425 | Product #001
Applicant: ACCORD HEALTHCARE INC
Approved: Nov 13, 2020 | RLD: No | RS: No | Type: DISCN